FAERS Safety Report 10279489 (Version 1)
Quarter: 2014Q2

REPORT INFORMATION
  Report Type: Spontaneous
  Country: NL (occurrence: None)
  Receive Date: 20140630
  Receipt Date: 20140630
  Transmission Date: 20141212
  Serious: Yes (Hospitalization)
  Sender: FDA-Public Use
  Company Number: AUR-APL-2013-03941

PATIENT
  Age: 60 Year
  Sex: Male

DRUGS (6)
  1. OLANZAPINE [Suspect]
     Indication: PROPHYLAXIS
  2. OLANZAPINE [Suspect]
     Indication: BIPOLAR I DISORDER
  3. PRAMIPEXOLE (PRAMIPEXOLE) [Suspect]
     Indication: RESTLESS LEGS SYNDROME
  4. MIRTAZAPINE [Concomitant]
  5. OXAZEPAM [Concomitant]
  6. LITHIUM [Concomitant]

REACTIONS (4)
  - Mania [None]
  - Agitation [None]
  - Insomnia [None]
  - Drug interaction [None]
